FAERS Safety Report 23695729 (Version 1)
Quarter: 2024Q2

REPORT INFORMATION
  Report Type: Spontaneous
  Country: GB (occurrence: GB)
  Receive Date: 20240402
  Receipt Date: 20240402
  Transmission Date: 20240715
  Serious: Yes (Hospitalization)
  Sender: FDA-Public Use
  Company Number: GB-MACLEODS PHARMACEUTICALS US LTD-MAC2024046655

PATIENT

DRUGS (1)
  1. VENLAFAXINE [Suspect]
     Active Substance: VENLAFAXINE HYDROCHLORIDE
     Indication: Depression
     Dosage: 8.85 GRAM, SINGLE, TABLET, 118 PIECES OF 75-MG TABLETS
     Route: 065

REACTIONS (8)
  - Toxicity to various agents [Unknown]
  - Hypoxia [Recovered/Resolved]
  - Aspiration [Recovered/Resolved]
  - Generalised tonic-clonic seizure [Recovered/Resolved]
  - Sinus tachycardia [Recovered/Resolved]
  - Torsade de pointes [Recovered/Resolved]
  - Rhabdomyolysis [Recovered/Resolved]
  - Overdose [Unknown]
